FAERS Safety Report 9587504 (Version 1)
Quarter: 2013Q4

REPORT INFORMATION
  Report Type: Spontaneous
  Country: US (occurrence: US)
  Receive Date: 20131003
  Receipt Date: 20131003
  Transmission Date: 20140711
  Serious: Yes (Other)
  Sender: FDA-Public Use
  Company Number: US-BAYER-2013-118119

PATIENT
  Age: 51 Year
  Sex: Female
  Weight: 57 kg

DRUGS (3)
  1. ALEVE CAPLET [Suspect]
     Dosage: UNK UNK, PRN
     Dates: end: 201309
  2. ALEVE CAPLET [Suspect]
     Dosage: 2 DF, IN EVENING
     Route: 048
     Dates: start: 20130927
  3. TRAMADOL [Concomitant]
     Indication: BACK PAIN
     Dosage: 2 DF, MORNING
     Dates: start: 20130927

REACTIONS (6)
  - Diarrhoea haemorrhagic [Recovered/Resolved]
  - Rectal haemorrhage [Recovered/Resolved]
  - Abdominal pain [Recovered/Resolved]
  - Retching [Recovered/Resolved]
  - Diarrhoea [Recovered/Resolved]
  - Abdominal tenderness [Not Recovered/Not Resolved]
